FAERS Safety Report 21357377 (Version 1)
Quarter: 2022Q3

REPORT INFORMATION
  Report Type: Spontaneous
  Country: US (occurrence: US)
  Receive Date: 20220921
  Receipt Date: 20220921
  Transmission Date: 20221027
  Serious: No
  Sender: FDA-Public Use
  Company Number: US-TARO PHARMACEUTICALS USA INC.-2022TAR00229

PATIENT

DRUGS (2)
  1. FLUOCINONIDE [Suspect]
     Active Substance: FLUOCINONIDE
     Indication: Oral disorder
     Dosage: ON THE LESIONS - PUT A LITTLE DAB ON END OF FINGER THAT^S HOW I WAS USING IT. BID
     Route: 048
     Dates: start: 202111
  2. FLUOCINONIDE [Suspect]
     Active Substance: FLUOCINONIDE
     Dosage: UNK, ONCE
     Route: 048
     Dates: end: 20220203

REACTIONS (6)
  - Malaise [Not Recovered/Not Resolved]
  - Duodenogastric reflux [Not Recovered/Not Resolved]
  - Vision blurred [Not Recovered/Not Resolved]
  - Disease recurrence [Unknown]
  - Headache [Not Recovered/Not Resolved]
  - Off label use [Not Recovered/Not Resolved]

NARRATIVE: CASE EVENT DATE: 20211101
